FAERS Safety Report 5000133-5 (Version None)
Quarter: 2006Q1

REPORT INFORMATION
  Report Type: 
  Country: None (occurrence: None)
  Receive Date: 20060315
  Receipt Date: 20051121
  Transmission Date: 20060701
  Serious: Yes (Other)
  Sender: FDA-Public Use
  Company Number: 415171

PATIENT
  Sex: Female

DRUGS (3)
  1. BONIVA [Suspect]
     Indication: OSTEOPOROSIS
     Dates: start: 20050815
  2. BOTOX (BOTULINUM TOXIN TYPE A) [Suspect]
     Indication: MIGRAINE
  3. PRILOSEC [Concomitant]

REACTIONS (2)
  - MIGRAINE [None]
  - NAUSEA [None]
